FAERS Safety Report 7828205-8 (Version None)
Quarter: 2011Q4

REPORT INFORMATION
  Report Type: 
  Country: None (occurrence: None)
  Receive Date: 20111018
  Receipt Date: 20111004
  Transmission Date: 20120403
  Serious: Yes (Other)
  Sender: FDA-Public Use
  Company Number: TPA2011A06447

PATIENT
  Age: 78 Year
  Sex: Male
  Weight: 77.1115 kg

DRUGS (1)
  1. ACTOS [Suspect]
     Indication: DIABETES MELLITUS
     Dates: start: 20050101

REACTIONS (5)
  - WEIGHT DECREASED [None]
  - PROSTATIC DISORDER [None]
  - URINARY TRACT INFECTION [None]
  - BLADDER CANCER [None]
  - LUNG NEOPLASM MALIGNANT [None]
